FAERS Safety Report 4898500-3 (Version None)
Quarter: 2006Q1

REPORT INFORMATION
  Report Type: 
  Country: None (occurrence: None)
  Receive Date: 20060202
  Receipt Date: 20051214
  Transmission Date: 20060701
  Serious: Yes (Hospitalization, Other)
  Sender: FDA-Public Use
  Company Number: PHNU2005DE04146

PATIENT
  Age: 79 Year
  Sex: Male
  Weight: 82 kg

DRUGS (1)
  1. LOCOL [Suspect]
     Indication: HYPERCHOLESTEROLAEMIA
     Dosage: 40 MG, QD
     Route: 048
     Dates: start: 20000601, end: 20051202

REACTIONS (4)
  - BLOOD CREATINE PHOSPHOKINASE INCREASED [None]
  - FACIAL PARESIS [None]
  - MYALGIA [None]
  - TRANSIENT ISCHAEMIC ATTACK [None]
